FAERS Safety Report 8275850-4 (Version None)
Quarter: 2012Q2

REPORT INFORMATION
  Report Type: 
  Country: None (occurrence: None)
  Receive Date: 20120410
  Receipt Date: 20120410
  Transmission Date: 20120825
  Serious: Yes (Hospitalization)
  Sender: FDA-Public Use
  Company Number: None

PATIENT
  Age: 17 Year
  Sex: Female
  Weight: 96.4 kg

DRUGS (8)
  1. CLOZAPINE [Suspect]
     Indication: PSYCHOTIC DISORDER
     Dosage: 25MG BID ORAL  03/02/2012 UNTIL TRANSFER
     Route: 048
  2. GEODON [Concomitant]
  3. OMNICEF [Concomitant]
  4. HALDOL [Concomitant]
  5. DIVALPROEX SODIUM EXTENDED RELEASE [Concomitant]
  6. ACIDOPHILUS [Concomitant]
  7. IBURPOFEN [Concomitant]
  8. BENZTROPINE MESYLATE [Concomitant]

REACTIONS (1)
  - RENAL FAILURE ACUTE [None]
